FAERS Safety Report 9989586 (Version 1)
Quarter: 2014Q1

REPORT INFORMATION
  Report Type: Report from Study
  Country: US (occurrence: US)
  Receive Date: 20140310
  Receipt Date: 20140310
  Transmission Date: 20141002
  Serious: Yes (Other)
  Sender: FDA-Public Use
  Company Number: US-ABBVIE-13P-163-1136206-00

PATIENT
  Age: 70 Year
  Sex: Female
  Weight: 73.55 kg

DRUGS (6)
  1. HUMIRA [Suspect]
     Indication: PSORIASIS
     Dates: start: 201305
  2. BENAZAPRIL [Concomitant]
     Indication: HYPERTENSION
  3. ATORVASTATIN [Concomitant]
     Indication: BLOOD CHOLESTEROL INCREASED
  4. MELOXICAM [Concomitant]
     Indication: PRODUCT USED FOR UNKNOWN INDICATION
  5. ASPIRIN [Concomitant]
     Indication: PRODUCT USED FOR UNKNOWN INDICATION
  6. CALCIUM [Concomitant]
     Indication: VITAMIN SUPPLEMENTATION

REACTIONS (2)
  - Cataract [Recovering/Resolving]
  - Cataract [Not Recovered/Not Resolved]
